FAERS Safety Report 5412001-5 (Version None)
Quarter: 2007Q3

REPORT INFORMATION
  Report Type: 
  Country: None (occurrence: None)
  Receive Date: 20070809
  Receipt Date: 20070725
  Transmission Date: 20080115
  Serious: Yes (Other)
  Sender: FDA-Public Use
  Company Number: 07296

PATIENT
  Age: 68 Year
  Sex: Female

DRUGS (2)
  1. CUTAR EMULSION [Suspect]
     Indication: DRY SKIN
     Dosage: APPLICATION - QD - TOPICAL
     Route: 061
     Dates: start: 20070701, end: 20070701
  2. CUTAR EMULSION [Suspect]
     Indication: PSORIASIS
     Dosage: APPLICATION - QD - TOPICAL
     Route: 061
     Dates: start: 20070701, end: 20070701

REACTIONS (4)
  - BURNING SENSATION [None]
  - LOCALISED INFECTION [None]
  - OEDEMA PERIPHERAL [None]
  - STEVENS-JOHNSON SYNDROME [None]
